FAERS Safety Report 10497129 (Version 1)
Quarter: 2014Q4

REPORT INFORMATION
  Report Type: Spontaneous
  Country: US (occurrence: US)
  Receive Date: 20141006
  Receipt Date: 20141006
  Transmission Date: 20150528
  Serious: No
  Sender: FDA-Public Use
  Company Number: US-SHIRE-US201406583

PATIENT
  Age: 23 Year
  Sex: Male

DRUGS (1)
  1. VYVANSE [Suspect]
     Active Substance: LISDEXAMFETAMINE DIMESYLATE
     Indication: PRODUCT USED FOR UNKNOWN INDICATION
     Dosage: 60 MG, OTHER, FOUR DAYS PER WEEK
     Route: 048

REACTIONS (2)
  - Paraesthesia [Unknown]
  - Inappropriate schedule of drug administration [Not Recovered/Not Resolved]
